FAERS Safety Report 8310809-X (Version None)
Quarter: 2012Q2

REPORT INFORMATION
  Report Type: 
  Country: None (occurrence: None)
  Receive Date: 20120423
  Receipt Date: 20120409
  Transmission Date: 20120825
  Serious: Yes (Other)
  Sender: FDA-Public Use
  Company Number: DKLU1078249

PATIENT
  Age: 45 Year
  Sex: Male
  Weight: 102 kg

DRUGS (3)
  1. CLONAZEPAM [Suspect]
     Indication: PRODUCT USED FOR UNKNOWN INDICATION
     Dosage: 1 MG MILLIGRAM(S), 5 IN 1 D, 2 MG MILLIGRAM(S), 1 IN 1 D
  2. ONFI [Suspect]
     Indication: PRODUCT USED FOR UNKNOWN INDICATION
  3. DILANTIN [Suspect]
     Indication: EPILEPSY
     Dosage: 200 MG MILLIGRAM(S), 2 IN 1 D
     Dates: start: 19841201

REACTIONS (5)
  - MIGRAINE [None]
  - AMNESIA [None]
  - CONDITION AGGRAVATED [None]
  - CONVULSION [None]
  - PRODUCT QUALITY ISSUE [None]
